FAERS Safety Report 15792527 (Version 3)
Quarter: 2019Q1

REPORT INFORMATION
  Report Type: Spontaneous
  Country: US (occurrence: US)
  Receive Date: 20190107
  Receipt Date: 20190117
  Transmission Date: 20190417
  Serious: Yes (Life-Threatening, Hospitalization, Other)
  Sender: FDA-Public Use
  Company Number: US-AUROBINDO-AUR-APL-2018-064095

PATIENT
  Age: 76 Year
  Sex: Male

DRUGS (5)
  1. PRASUGREL. [Suspect]
     Active Substance: PRASUGREL
     Indication: VASCULAR STENT THROMBOSIS
     Dosage: UNK
     Route: 065
  2. ACETYLSALICYLIC ACID [Suspect]
     Active Substance: ASPIRIN
     Indication: ANTIPLATELET THERAPY
     Dosage: 81 MILLIGRAM
     Route: 065
  3. CLOPIDOGREL [Suspect]
     Active Substance: CLOPIDOGREL BISULFATE
     Indication: ANTIPLATELET THERAPY
     Dosage: 75 MILLIGRAM
     Route: 065
  4. CLOPIDOGREL [Suspect]
     Active Substance: CLOPIDOGREL BISULFATE
     Dosage: 300 MILLIGRAM
     Route: 065
  5. HEPARIN [Suspect]
     Active Substance: HEPARIN SODIUM
     Indication: PRODUCT USED FOR UNKNOWN INDICATION
     Dosage: 12000 IU
     Route: 065

REACTIONS (17)
  - Mass [Unknown]
  - Dysuria [Unknown]
  - Hepatic function abnormal [Recovered/Resolved]
  - Systolic dysfunction [Not Recovered/Not Resolved]
  - Electrocardiogram ST segment elevation [Unknown]
  - Ventricular internal diameter abnormal [Recovered/Resolved]
  - Cardiomyopathy [Unknown]
  - Condition aggravated [Recovered/Resolved]
  - Chest pain [Unknown]
  - Aortic intramural haematoma [Recovered/Resolved]
  - Haematoma [Recovered/Resolved]
  - Musculoskeletal pain [Unknown]
  - Arterial occlusive disease [Unknown]
  - Thrombosis [Recovered/Resolved]
  - Troponin I increased [Unknown]
  - Acute right ventricular failure [Recovering/Resolving]
  - Urine output decreased [Recovered/Resolved]
